FAERS Safety Report 8408648 (Version 3)
Quarter: 2014Q1

REPORT INFORMATION
  Report Type: Spontaneous
  Country: US (occurrence: None)
  Receive Date: 20111227
  Receipt Date: 20130107
  Transmission Date: 20141002
  Serious: No
  Sender: FDA-Public Use
  Company Number: PHEH2011US07702

PATIENT
  Age: 57 Year
  Sex: Female

DRUGS (1)
  1. GILENYA [Suspect]
     Indication: MULTIPLE SCLEROSIS
     Route: 048
     Dates: start: 20101122

REACTIONS (6)
  - Haemorrhage subcutaneous [None]
  - Back pain [None]
  - Liver function test abnormal [None]
  - Cough [None]
  - Inappropriate schedule of drug administration [None]
  - Arthritis [None]
